FAERS Safety Report 7208655-3 (Version None)
Quarter: 2010Q4

REPORT INFORMATION
  Report Type: 
  Country: None (occurrence: None)
  Receive Date: 20101222
  Receipt Date: 20101209
  Transmission Date: 20110411
  Serious: Yes (Other)
  Sender: FDA-Public Use
  Company Number: 1000017636

PATIENT
  Age: 73 Year
  Sex: Male

DRUGS (6)
  1. CITALOPRAM HYDROBROMIDE [Suspect]
     Dosage: 20 MG (20 MG,1 IN 1 D)
  2. RAMIPRIL [Suspect]
     Dosage: 2.5 MG (2.5 MG,1 IN 1 D)
  3. BISOPROLOL (BISOPROLOL) [Suspect]
     Dosage: 7.5 MG (7.5 MG,1 IN 1 D)
  4. ACETYLSALICYLIC ACID (ACETYLSALICYLIC ACID) [Suspect]
     Dosage: 100 MG (100 MG,1 IN 1 D)
  5. ATORVASTATIN (ATORVASTATIN) [Suspect]
     Dosage: 1O MG (10 MG, 1 IN 1 D)
  6. DICLOFENAC/MISOPROSTOL (DICLOFENA, MISOPROSTOL) [Suspect]
     Dosage: 100 MG (100 MG,1 IN 1 D)

REACTIONS (3)
  - DYSTONIA [None]
  - RESTLESSNESS [None]
  - SUICIDAL IDEATION [None]
